FAERS Safety Report 12485976 (Version 1)
Quarter: 2016Q2

REPORT INFORMATION
  Report Type: Report from Study
  Country: BR (occurrence: BR)
  Receive Date: 20160621
  Receipt Date: 20160621
  Transmission Date: 20160815
  Serious: Yes (Other)
  Sender: FDA-Public Use
  Company Number: PHHY2016BR082933

PATIENT
  Age: 9 Year
  Sex: Female
  Weight: 24.7 kg

DRUGS (2)
  1. TOPIRAMATE. [Suspect]
     Active Substance: TOPIRAMATE
     Indication: PAIN
     Dosage: 25 MG, QD
     Route: 065
  2. PROPRANOLOL [Suspect]
     Active Substance: PROPRANOLOL\PROPRANOLOL HYDROCHLORIDE
     Indication: MIGRAINE
     Dosage: 2 DF, QD
     Route: 065

REACTIONS (5)
  - Dyslexia [Unknown]
  - Language disorder [Unknown]
  - Migraine [Unknown]
  - Seizure [Recovered/Resolved]
  - Drug ineffective [Unknown]
